FAERS Safety Report 10035436 (Version 1)
Quarter: 2014Q1

REPORT INFORMATION
  Report Type: Spontaneous
  Country: JP (occurrence: JP)
  Receive Date: 20140325
  Receipt Date: 20140325
  Transmission Date: 20141002
  Serious: Yes (Hospitalization)
  Sender: FDA-Public Use
  Company Number: JP-SUCAMPO PHARMA AMERICAS, INC-SPI201400204

PATIENT
  Age: 8 Decade
  Sex: Male

DRUGS (1)
  1. AMITIZA [Suspect]
     Route: 048

REACTIONS (1)
  - Pleural effusion [Unknown]
